APPROVED DRUG PRODUCT: ALOSETRON HYDROCHLORIDE
Active Ingredient: ALOSETRON HYDROCHLORIDE
Strength: EQ 1MG BASE
Dosage Form/Route: TABLET;ORAL
Application: A200652 | Product #002
Applicant: HIKMA PHARMACEUTICALS USA INC
Approved: May 4, 2015 | RLD: No | RS: No | Type: DISCN